FAERS Safety Report 8235685-5 (Version None)
Quarter: 2012Q1

REPORT INFORMATION
  Report Type: 
  Country: None (occurrence: None)
  Receive Date: 20120326
  Receipt Date: 20120321
  Transmission Date: 20120608
  Serious: Yes (Hospitalization, Other)
  Sender: FDA-Public Use
  Company Number: PHHY2012AU019604

PATIENT
  Sex: Female

DRUGS (2)
  1. CLOZAPINE [Suspect]
     Dosage: 100 MG
     Dates: start: 20120119, end: 20120302
  2. CLOZARIL [Suspect]
     Dosage: 150 MG, QD
     Dates: start: 20120119, end: 20120204

REACTIONS (3)
  - SEDATION [None]
  - DRUG INEFFECTIVE [None]
  - CARDIAC DISORDER [None]
